FAERS Safety Report 9447514 (Version 3)
Quarter: 2013Q4

REPORT INFORMATION
  Report Type: Spontaneous
  Country: US (occurrence: US)
  Receive Date: 20130808
  Receipt Date: 20131002
  Transmission Date: 20140711
  Serious: No
  Sender: FDA-Public Use
  Company Number: US-PFIZER INC-2013230292

PATIENT
  Age: 77 Year
  Sex: Male
  Weight: 84.35 kg

DRUGS (1)
  1. NICOTROL INHALER [Suspect]
     Indication: SMOKING CESSATION THERAPY
     Dosage: UNK, DAILY
     Route: 055
     Dates: start: 20130730, end: 20130802

REACTIONS (1)
  - Drug ineffective [Unknown]
